FAERS Safety Report 6894956-5 (Version None)
Quarter: 2010Q3

REPORT INFORMATION
  Report Type: 
  Country: None (occurrence: None)
  Receive Date: 20100802
  Receipt Date: 20100719
  Transmission Date: 20110219
  Serious: Yes (Other)
  Sender: FDA-Public Use
  Company Number: BR-ELI_LILLY_AND_COMPANY-BR201006004087

PATIENT
  Age: 25 Year
  Sex: Female

DRUGS (3)
  1. CYMBALTA [Suspect]
     Indication: FIBROMYALGIA
     Dosage: 30 MG, DAILY (1/D)
     Route: 065
  2. LYRICA [Concomitant]
     Dosage: 75 MG, DAILY (1/D)
     Route: 065
  3. VALPROIC ACID [Concomitant]
     Dosage: 750 MG, DAILY (1/D)
     Route: 065

REACTIONS (6)
  - ABDOMINAL PAIN [None]
  - CONVULSIVE THRESHOLD LOWERED [None]
  - EPILEPSY [None]
  - FIBROMYALGIA [None]
  - ORTHOSTATIC HYPOTENSION [None]
  - SYNCOPE [None]
